FAERS Safety Report 5120442-9 (Version None)
Quarter: 2006Q4

REPORT INFORMATION
  Report Type: 
  Country: None (occurrence: None)
  Receive Date: 20061002
  Receipt Date: 20060915
  Transmission Date: 20070319
  Serious: Yes (Hospitalization)
  Sender: FDA-Public Use
  Company Number: DSA_28734_2006

PATIENT
  Age: 40 Year
  Sex: Female

DRUGS (2)
  1. TAVOR          /00273201/ [Suspect]
     Dosage: 30 MG ONCE PO
     Route: 048
     Dates: start: 20060914, end: 20060914
  2. ALCOHOL (OUZO) [Suspect]
     Dosage: 0.5 BOTTLE ONCE PO
     Route: 048
     Dates: start: 20060914, end: 20060914

REACTIONS (4)
  - ALCOHOL USE [None]
  - FEELING DRUNK [None]
  - OVERDOSE [None]
  - SUICIDE ATTEMPT [None]
